FAERS Safety Report 18081377 (Version 1)
Quarter: 2020Q3

REPORT INFORMATION
  Report Type: Spontaneous
  Country: CN (occurrence: CN)
  Receive Date: 20200728
  Receipt Date: 20200728
  Transmission Date: 20201103
  Serious: Yes (Hospitalization)
  Sender: FDA-Public Use
  Company Number: CN-ASTRAZENECA-2020SE88697

PATIENT
  Age: 64 Year
  Sex: Female
  Weight: 55 kg

DRUGS (6)
  1. NEXIUM [Suspect]
     Active Substance: ESOMEPRAZOLE MAGNESIUM
     Indication: ABDOMINAL DISCOMFORT
     Route: 048
  2. OMEPRAZOLE. [Concomitant]
     Active Substance: OMEPRAZOLE
     Indication: ABDOMINAL DISCOMFORT
     Dosage: ONE PILL QD IN THE MORNING
     Route: 048
  3. TAGRISSO [Suspect]
     Active Substance: OSIMERTINIB
     Indication: LUNG DISORDER
     Route: 048
     Dates: start: 202004
  4. IRESSA [Suspect]
     Active Substance: GEFITINIB
     Route: 048
  5. MOTILIUM [Suspect]
     Active Substance: DOMPERIDONE
     Indication: GASTRIC HYPOMOTILITY
     Route: 065
  6. DOMPERIDONE [Concomitant]
     Active Substance: DOMPERIDONE
     Dosage: SOMETIMES 1 PILL QD, SOMETIMES 1 PILL BID
     Route: 065

REACTIONS (10)
  - Weight decreased [Unknown]
  - Hyponatraemia [Recovering/Resolving]
  - Drug resistance [Unknown]
  - Vomiting [Recovering/Resolving]
  - Abdominal discomfort [Unknown]
  - Drug ineffective [Unknown]
  - Computerised tomogram abnormal [Unknown]
  - Gastrooesophageal reflux disease [Recovering/Resolving]
  - Gastric hypomotility [Recovering/Resolving]
  - Nausea [Unknown]

NARRATIVE: CASE EVENT DATE: 202004
